FAERS Safety Report 13678703 (Version 6)
Quarter: 2021Q3

REPORT INFORMATION
  Report Type: Spontaneous
  Country: US (occurrence: US)
  Receive Date: 20170622
  Receipt Date: 20210713
  Transmission Date: 20211014
  Serious: No
  Sender: FDA-Public Use
  Company Number: US-SA-2017SA029275

PATIENT
  Age: 53 Year
  Sex: Female

DRUGS (4)
  1. CEREZYME [Suspect]
     Active Substance: IMIGLUCERASE
     Indication: GAUCHER^S DISEASE
     Dosage: 5500 DF,QOW
     Route: 042
     Dates: start: 20090819
  2. TYVASO [Concomitant]
     Active Substance: TREPROSTINIL
     Dosage: TD 300 DEVICES
  3. CEREZYME [Suspect]
     Active Substance: IMIGLUCERASE
     Indication: PULMONARY ARTERIAL HYPERTENSION
     Dosage: 5600 U, QOW
     Route: 042
     Dates: start: 20200128
  4. AMBRISENTAN [Suspect]
     Active Substance: AMBRISENTAN

REACTIONS (3)
  - Product use in unapproved indication [Unknown]
  - Oedema peripheral [Unknown]
  - Product preparation error [Unknown]

NARRATIVE: CASE EVENT DATE: 2017
